FAERS Safety Report 21606495 (Version 1)
Quarter: 2022Q4

REPORT INFORMATION
  Report Type: Report from Study
  Country: US (occurrence: US)
  Receive Date: 20221117
  Receipt Date: 20221117
  Transmission Date: 20230113
  Serious: Yes (Other)
  Sender: FDA-Public Use
  Company Number: US-ABBVIE-4202975

PATIENT
  Age: 55 Year
  Sex: Male
  Weight: 73.935 kg

DRUGS (1)
  1. RINVOQ [Suspect]
     Active Substance: UPADACITINIB
     Indication: Rheumatoid arthritis
     Route: 048
     Dates: start: 2019

REACTIONS (5)
  - Elbow operation [Unknown]
  - Therapeutic product effect decreased [Not Recovered/Not Resolved]
  - Skin disorder [Unknown]
  - Arthralgia [Not Recovered/Not Resolved]
  - Elbow operation [Unknown]

NARRATIVE: CASE EVENT DATE: 20220401
